FAERS Safety Report 18474411 (Version 3)
Quarter: 2021Q1

REPORT INFORMATION
  Report Type: Report from Study
  Country: CL (occurrence: CL)
  Receive Date: 20201106
  Receipt Date: 20210122
  Transmission Date: 20210419
  Serious: Yes (Other)
  Sender: FDA-Public Use
  Company Number: CL-AMGEN-CHLSP2020178337

PATIENT
  Age: 40 Year
  Sex: Male

DRUGS (2)
  1. AMGEVITA [Suspect]
     Active Substance: ADALIMUMAB
     Indication: COLITIS ULCERATIVE
     Dosage: 40 MILLIGRAM, Q2WK
     Route: 058
     Dates: start: 20191201
  2. AMGEVITA [Suspect]
     Active Substance: ADALIMUMAB
     Dosage: 40 MILLIGRAM, QWK
     Route: 058

REACTIONS (4)
  - Tooth extraction [Recovered/Resolved]
  - Colitis ulcerative [Unknown]
  - Off label use [Unknown]
  - Faecal calprotectin abnormal [Recovered/Resolved]

NARRATIVE: CASE EVENT DATE: 202101
